FAERS Safety Report 4765612-4 (Version None)
Quarter: 2005Q3

REPORT INFORMATION
  Report Type: 
  Country: None (occurrence: None)
  Receive Date: 20050906
  Receipt Date: 20050823
  Transmission Date: 20060218
  Serious: Yes (Hospitalization, Other)
  Sender: FDA-Public Use
  Company Number: JP_050506640

PATIENT
  Age: 41 Year
  Sex: Female
  Weight: 100 kg

DRUGS (5)
  1. ZYPREXA [Suspect]
     Indication: SCHIZOPHRENIA
     Dosage: 10 MG DAY
     Dates: start: 20040522, end: 20050519
  2. RISPERDAL [Concomitant]
  3. DIAZEPAM [Concomitant]
  4. AKINETON   /00079502/ (BIPERIDEN HYDROCHLORIDE) [Concomitant]
  5. PURSENNID [Concomitant]

REACTIONS (6)
  - GLUCOSE URINE PRESENT [None]
  - GLYCOSYLATED HAEMOGLOBIN INCREASED [None]
  - HYPERGLYCAEMIA [None]
  - OBESITY [None]
  - POLYDIPSIA [None]
  - POLYURIA [None]
